FAERS Safety Report 8957001 (Version 1)
Quarter: 2012Q4

REPORT INFORMATION
  Report Type: 
  Country: IT (occurrence: IT)
  Receive Date: 20121210
  Receipt Date: 20121210
  Transmission Date: 20130627
  Serious: Yes (Hospitalization)
  Sender: FDA-Public Use
  Company Number: IT-ROCHE-1165394

PATIENT
  Age: 53 Year
  Sex: Male

DRUGS (3)
  1. RIVOTRIL [Suspect]
     Indication: PRODUCT USED FOR UNKNOWN INDICATION
     Route: 048
     Dates: start: 20121202, end: 20121202
  2. ZYPREXA [Suspect]
     Indication: PRODUCT USED FOR UNKNOWN INDICATION
     Route: 048
     Dates: start: 20121202, end: 20121202
  3. SERTRALINE [Concomitant]
     Route: 048

REACTIONS (3)
  - Intentional self-injury [Recovering/Resolving]
  - Oxygen saturation decreased [Recovering/Resolving]
  - Sopor [Recovering/Resolving]
